FAERS Safety Report 24016060 (Version 1)
Quarter: 2024Q2

REPORT INFORMATION
  Report Type: Report from Study
  Country: US (occurrence: US)
  Receive Date: 20240626
  Receipt Date: 20240626
  Transmission Date: 20240715
  Serious: Yes (Other)
  Sender: FDA-Public Use
  Company Number: US-ALNYLAM PHARMACEUTICALS, INC.-ALN-2024-003536

PATIENT

DRUGS (1)
  1. GIVLAARI [Suspect]
     Active Substance: GIVOSIRAN SODIUM
     Indication: Porphyria
     Dosage: UNK
     Route: 065
     Dates: start: 20210705, end: 20210705

REACTIONS (3)
  - Hysterectomy [Unknown]
  - Cellulitis [Unknown]
  - Gastrostomy tube site complication [Unknown]

NARRATIVE: CASE EVENT DATE: 20240525
